FAERS Safety Report 24464714 (Version 1)
Quarter: 2024Q4

REPORT INFORMATION
  Report Type: Report from Study
  Country: US (occurrence: US)
  Receive Date: 20241018
  Receipt Date: 20241018
  Transmission Date: 20250115
  Serious: No
  Sender: ROCHE
  Company Number: US-ROCHE-3508868

PATIENT
  Age: 70 Year
  Sex: Female
  Weight: 89.36 kg

DRUGS (4)
  1. XOLAIR [Suspect]
     Active Substance: OMALIZUMAB
     Indication: Angioedema
     Dosage: THE PATIENT STATED SHE BELIEVES HER DOSE IS 140 OR 150 MG BUT SHE IS NOT POSITIVE ;ONGOING: YES
     Route: 058
     Dates: start: 201906
  2. XOLAIR [Suspect]
     Active Substance: OMALIZUMAB
     Indication: Idiopathic urticaria
  3. PREDNISONE [Concomitant]
     Active Substance: PREDNISONE
     Route: 048
     Dates: start: 2005
  4. REPATHA [Concomitant]
     Active Substance: EVOLOCUMAB
     Indication: Blood cholesterol decreased
     Dosage: THE PATIENT STATED SHE THINKS THE DOSE IS BETWEEN 140 AND 150 MG
     Route: 030
     Dates: start: 202310

REACTIONS (2)
  - Nasopharyngitis [Not Recovered/Not Resolved]
  - Off label use [Unknown]

NARRATIVE: CASE EVENT DATE: 20190601
